FAERS Safety Report 25727877 (Version 1)
Quarter: 2025Q3

REPORT INFORMATION
  Report Type: Spontaneous
  Country: US (occurrence: US)
  Receive Date: 20250826
  Receipt Date: 20250826
  Transmission Date: 20251021
  Serious: Yes (Other)
  Sender: INCYTE
  Company Number: US-INCYTE CORPORATION-2025IN009200

PATIENT
  Age: 65 Year

DRUGS (3)
  1. JAKAFI [Suspect]
     Active Substance: RUXOLITINIB
     Indication: Myelofibrosis
  2. ANAGRELIDE [Suspect]
     Active Substance: ANAGRELIDE
     Route: 065
  3. HYDREA [Suspect]
     Active Substance: HYDROXYUREA
     Route: 065

REACTIONS (3)
  - Cardiac failure congestive [Unknown]
  - Temperature intolerance [Unknown]
  - Heat stroke [Unknown]
